FAERS Safety Report 17336580 (Version 2)
Quarter: 2020Q2

REPORT INFORMATION
  Report Type: Spontaneous
  Country: PL (occurrence: PL)
  Receive Date: 20200128
  Receipt Date: 20200603
  Transmission Date: 20200713
  Serious: Yes (Other)
  Sender: FDA-Public Use
  Company Number: PL-ROCHE-2529969

PATIENT
  Sex: Female

DRUGS (1)
  1. HERCEPTIN [Suspect]
     Active Substance: TRASTUZUMAB
     Indication: BREAST CANCER
     Dosage: INJECTION
     Route: 041

REACTIONS (15)
  - Pain in extremity [Unknown]
  - Hypoaesthesia [Unknown]
  - Myalgia [Recovered/Resolved with Sequelae]
  - Bone pain [Recovered/Resolved with Sequelae]
  - Feeling abnormal [Unknown]
  - Fingerprint loss [Recovering/Resolving]
  - Madarosis [Unknown]
  - Asthenia [Unknown]
  - Swelling face [Unknown]
  - Mental impairment [Unknown]
  - Visual impairment [Unknown]
  - Alopecia [Unknown]
  - Pain [Recovered/Resolved with Sequelae]
  - Nail discolouration [Unknown]
  - Gastric disorder [Unknown]
